FAERS Safety Report 6371518-X (Version None)
Quarter: 2009Q3

REPORT INFORMATION
  Report Type: 
  Country: None (occurrence: None)
  Receive Date: 20090923
  Receipt Date: 20080519
  Transmission Date: 20100115
  Serious: No
  Sender: FDA-Public Use
  Company Number: US-ASTRAZENECA-2007UW25113

PATIENT
  Age: 44 Year
  Sex: Male

DRUGS (21)
  1. SEROQUEL [Suspect]
     Indication: ANXIETY
     Dosage: 100 MG - 300 MG
     Route: 048
     Dates: start: 20030101, end: 20070601
  2. SEROQUEL [Suspect]
     Indication: BIPOLAR DISORDER
     Dosage: 100 MG - 300 MG
     Route: 048
     Dates: start: 20030101, end: 20070601
  3. SEROQUEL [Suspect]
     Dosage: 25 MG TO 100 MG
     Route: 048
     Dates: start: 20040729
  4. SEROQUEL [Suspect]
     Dosage: 25 MG TO 100 MG
     Route: 048
     Dates: start: 20040729
  5. CLONAZEPAM [Concomitant]
     Dosage: 0.5 MG - 1 MG
     Route: 065
  6. DEPAKOTE [Concomitant]
     Route: 065
  7. AMBIEN [Concomitant]
     Route: 065
  8. METHIMAZOLE [Concomitant]
     Route: 065
  9. PROPRANOLOL [Concomitant]
     Route: 065
  10. OMEPRAZOLE [Concomitant]
     Route: 065
  11. EFFEXOR [Concomitant]
     Route: 065
  12. ACETAMINOPHEN AND HYDROCODONE BITARTRATE [Concomitant]
     Route: 065
  13. ATENOLOL [Concomitant]
     Route: 065
  14. NORVASC [Concomitant]
     Dosage: 2.5 MG-10 MG
     Route: 065
  15. ZETIA [Concomitant]
     Route: 065
  16. TRIAM [Concomitant]
     Route: 065
  17. LISINOPRIL [Concomitant]
     Route: 065
  18. NIASPAN [Concomitant]
     Route: 065
  19. ABILIFY [Concomitant]
     Route: 065
  20. PREVACID [Concomitant]
     Route: 065
  21. MIRAPEX [Concomitant]
     Route: 065

REACTIONS (1)
  - DIABETES MELLITUS [None]
